FAERS Safety Report 19250748 (Version 2)
Quarter: 2021Q2

REPORT INFORMATION
  Report Type: Spontaneous
  Country: DK (occurrence: DK)
  Receive Date: 20210513
  Receipt Date: 20210520
  Transmission Date: 20210717
  Serious: Yes (Hospitalization)
  Sender: FDA-Public Use
  Company Number: DK-ACCORD-224935

PATIENT
  Age: 67 Year
  Sex: Female
  Weight: 62.7 kg

DRUGS (24)
  1. FURIX [Concomitant]
     Dates: start: 20210227
  2. METOCLOPRAMIDE. [Concomitant]
     Active Substance: METOCLOPRAMIDE
     Dates: start: 20201027
  3. ONDANSETRON [Concomitant]
     Active Substance: ONDANSETRON
     Dates: start: 20201027
  4. OXALIPLATIN. [Suspect]
     Active Substance: OXALIPLATIN
     Indication: DIFFUSE LARGE B-CELL LYMPHOMA STAGE IV
     Dosage: DOSE DELAYED??CONCENTRATE AND SOLVENT FOR CONCENTRATE FOR SOLUTION FOR INFUSION
     Route: 042
     Dates: start: 20210412, end: 20210412
  5. TRAMADOL. [Concomitant]
     Active Substance: TRAMADOL
     Dates: start: 20210414
  6. PREDNISOLONE. [Suspect]
     Active Substance: PREDNISOLONE
     Indication: DIFFUSE LARGE B-CELL LYMPHOMA STAGE IV
     Dosage: QD
     Route: 042
  7. KALIUM CHLORID [Concomitant]
     Active Substance: POTASSIUM CHLORIDE
     Dates: start: 20210227
  8. GLUCOSE/POTASSIUM CHLORIDE/SODIUM CHLORIDE [Concomitant]
     Active Substance: DEXTROSE\POTASSIUM CHLORIDE\SODIUM CHLORIDE
     Dates: start: 20210417
  9. PREDNISOLONE. [Concomitant]
     Active Substance: PREDNISOLONE
     Dates: start: 20210412, end: 20210423
  10. EPCORITAMAB. [Suspect]
     Active Substance: EPCORITAMAB
     Indication: DIFFUSE LARGE B-CELL LYMPHOMA STAGE IV
     Dosage: INTERMEDIATE DOSE: 0.8 MILLIGRAM
     Route: 058
     Dates: start: 20210420, end: 20210420
  11. FLUCONAZOLE. [Concomitant]
     Active Substance: FLUCONAZOLE
     Dates: start: 20210224
  12. MORPHINE [Concomitant]
     Active Substance: MORPHINE
     Dates: start: 20201024
  13. UNIKALK BASIC [Concomitant]
     Dates: start: 20200611
  14. PARACETAMOL [Concomitant]
     Active Substance: ACETAMINOPHEN
     Dates: start: 20210412, end: 20210420
  15. FRAGMIN [Concomitant]
     Active Substance: DALTEPARIN SODIUM
     Dates: start: 20210325
  16. PARACETAMOL [Concomitant]
     Active Substance: ACETAMINOPHEN
     Route: 048
     Dates: start: 20190815
  17. GEMCITABINE/GEMCITABINE HYDROCHLORIDE [Suspect]
     Active Substance: GEMCITABINE\GEMCITABINE HYDROCHLORIDE
     Indication: DIFFUSE LARGE B-CELL LYMPHOMA STAGE IV
     Dosage: DOSE DELAYED, 1Q4W
     Route: 042
     Dates: start: 20210412, end: 20210412
  18. EPCORITAMAB. [Suspect]
     Active Substance: EPCORITAMAB
     Indication: DIFFUSE LARGE B-CELL LYMPHOMA STAGE IV
     Dosage: PRIMING DOSE: 0.16 MILLIGRAM?DOSE DELAYED
     Route: 058
     Dates: start: 20210412, end: 20210412
  19. ZOLEDRONIC ACID [Suspect]
     Active Substance: ZOLEDRONIC ACID
     Indication: PRODUCT USED FOR UNKNOWN INDICATION
     Route: 042
     Dates: start: 20200902
  20. CETIRIZINE/CETIRIZINE HYDROCHLORIDE [Concomitant]
     Active Substance: CETIRIZINE HYDROCHLORIDE
     Indication: PREMEDICATION
     Route: 048
     Dates: start: 20210412, end: 20210412
  21. PARACETAMOL [Concomitant]
     Active Substance: ACETAMINOPHEN
     Indication: PREMEDICATION
     Route: 048
     Dates: start: 20210412, end: 20210412
  22. PREGABALIN. [Concomitant]
     Active Substance: PREGABALIN
     Dates: start: 20190930
  23. ALLOPURINOL. [Concomitant]
     Active Substance: ALLOPURINOL
     Dates: start: 20210408
  24. CETIRIZINE/CETIRIZINE HYDROCHLORIDE [Concomitant]
     Active Substance: CETIRIZINE HYDROCHLORIDE
     Dates: start: 20210412, end: 20210420

REACTIONS (2)
  - Cytokine release syndrome [Not Recovered/Not Resolved]
  - Off label use [Unknown]

NARRATIVE: CASE EVENT DATE: 20210413
